FAERS Safety Report 11653505 (Version 2)
Quarter: 2015Q4

REPORT INFORMATION
  Report Type: Spontaneous
  Country: DE (occurrence: DE)
  Receive Date: 20151022
  Receipt Date: 20151026
  Transmission Date: 20160304
  Serious: Yes (Hospitalization, Other)
  Sender: FDA-Public Use
  Company Number: DE-ABBVIE-15P-062-1485874-00

PATIENT
  Age: 32 Year
  Sex: Female

DRUGS (3)
  1. LAMOTRIGINE. [Suspect]
     Active Substance: LAMOTRIGINE
     Indication: GENERALISED TONIC-CLONIC SEIZURE
     Route: 065
  2. CLOBAZAM [Suspect]
     Active Substance: CLOBAZAM
     Indication: GENERALISED TONIC-CLONIC SEIZURE
     Route: 065
  3. VALPROIC ACID. [Suspect]
     Active Substance: VALPROIC ACID
     Indication: EPILEPSY
     Route: 065

REACTIONS (10)
  - Hypoventilation [Unknown]
  - Tachypnoea [Unknown]
  - Tachycardia [Unknown]
  - Respiratory failure [Unknown]
  - Respiratory acidosis [Unknown]
  - Chest pain [Unknown]
  - Oxygen saturation decreased [Unknown]
  - PO2 decreased [Unknown]
  - Osteopenia [Unknown]
  - Sternal fracture [Recovering/Resolving]
